FAERS Safety Report 9171056 (Version 2)
Quarter: 2013Q2

REPORT INFORMATION
  Report Type: Spontaneous
  Country: IT (occurrence: IT)
  Receive Date: 20130319
  Receipt Date: 20130417
  Transmission Date: 20140414
  Serious: Yes (Hospitalization)
  Sender: FDA-Public Use
  Company Number: PHHY2013IT026278

PATIENT
  Sex: Male

DRUGS (2)
  1. TOLEP [Suspect]
     Indication: PARTIAL SEIZURES
     Dosage: 600 MG, DAILY
     Route: 048
     Dates: start: 20111101, end: 20121218
  2. TRITTICO [Concomitant]
     Indication: SALIVARY HYPERSECRETION
     Dosage: 25 MG/ML
     Route: 048
     Dates: start: 20121210, end: 20121215

REACTIONS (4)
  - Electroencephalogram abnormal [Recovered/Resolved]
  - Cerebral disorder [Recovered/Resolved]
  - Speech disorder [Recovered/Resolved]
  - Salivary hypersecretion [Recovered/Resolved]
